FAERS Safety Report 6444269-0 (Version None)
Quarter: 2009Q4

REPORT INFORMATION
  Report Type: 
  Country: None (occurrence: None)
  Receive Date: 20091118
  Receipt Date: 20091109
  Transmission Date: 20100525
  Serious: No
  Sender: FDA-Public Use
  Company Number: AU-ASTRAZENECA-2008AP01942

PATIENT
  Age: 63 Year
  Sex: Male

DRUGS (10)
  1. CRESTOR [Suspect]
     Indication: BLOOD CHOLESTEROL DECREASED
     Route: 048
     Dates: start: 20080220, end: 20080304
  2. CLOPIDOGREL [Suspect]
     Indication: CORONARY ARTERIAL STENT INSERTION
     Dosage: GIVEN IN THE PAST
  3. CLOPIDOGREL [Suspect]
     Route: 048
     Dates: start: 20080219, end: 20080319
  4. ASPIRIN [Concomitant]
     Indication: MYOCARDIAL ISCHAEMIA
     Route: 048
  5. METOPROLOL TARTRATE [Concomitant]
     Indication: HYPERTENSION
     Route: 048
  6. METOPROLOL TARTRATE [Concomitant]
     Indication: ANGINA PECTORIS
     Route: 048
  7. AMLODIPINE [Concomitant]
     Indication: HYPERTENSION
     Route: 048
  8. AMLODIPINE [Concomitant]
     Indication: ANGINA PECTORIS
     Route: 048
  9. EZETROL [Concomitant]
     Indication: BLOOD CHOLESTEROL INCREASED
     Route: 048
  10. GLYCERYL TRINITRATE [Concomitant]
     Dosage: GIVEN WHEN NEEDED
     Route: 060

REACTIONS (4)
  - GINGIVAL BLEEDING [None]
  - GINGIVAL PAIN [None]
  - GINGIVITIS [None]
  - RASH PRURITIC [None]
